FAERS Safety Report 10908443 (Version 1)
Quarter: 2015Q1

REPORT INFORMATION
  Report Type: Spontaneous
  Country: US (occurrence: None)
  Receive Date: 20150128
  Receipt Date: 20150128
  Transmission Date: 20150721
  Serious: No
  Sender: FDA-Public Use
  Company Number: 2014TUS010355

PATIENT
  Age: 63 Year
  Sex: Female
  Weight: 65.8 kg

DRUGS (5)
  1. CENTRUM [Concomitant]
     Active Substance: VITAMINS
  2. BRINTELLIX [Suspect]
     Active Substance: VORTIOXETINE HYDROBROMIDE
     Indication: MAJOR DEPRESSION
     Route: 048
     Dates: start: 201410, end: 201410
  3. CLONAZEPAM. [Concomitant]
     Active Substance: CLONAZEPAM
  4. PRISTIQ (DESVENLAFAXINE SUCCINATE) [Suspect]
     Active Substance: DESVENLAFAXINE SUCCINATE
     Indication: MAJOR DEPRESSION
     Route: 048
     Dates: end: 201410
  5. WELLBUTRIN [Concomitant]
     Active Substance: BUPROPION HYDROCHLORIDE

REACTIONS (3)
  - Nightmare [None]
  - Nausea [None]
  - Feeling abnormal [None]
